FAERS Safety Report 6051943-7 (Version None)
Quarter: 2009Q1

REPORT INFORMATION
  Report Type: 
  Country: None (occurrence: None)
  Receive Date: 20090126
  Receipt Date: 20090114
  Transmission Date: 20090719
  Serious: Yes (Hospitalization)
  Sender: FDA-Public Use
  Company Number: FR-PFIZER INC-2009156678

PATIENT

DRUGS (21)
  1. REVATIO [Suspect]
     Route: 048
     Dates: start: 20081008, end: 20081014
  2. INSPRA [Suspect]
     Route: 048
     Dates: start: 20080904, end: 20081027
  3. CRESTOR [Suspect]
     Route: 048
     Dates: start: 20080901, end: 20081113
  4. IMOVANE [Suspect]
     Route: 048
     Dates: start: 20081010, end: 20081113
  5. PREVISCAN [Suspect]
     Route: 048
     Dates: start: 20081014, end: 20081113
  6. COVERSYL [Suspect]
     Route: 048
     Dates: start: 20081104, end: 20081113
  7. COVERSYL [Suspect]
     Route: 048
     Dates: start: 20081019, end: 20081021
  8. LASILIX [Suspect]
     Route: 048
     Dates: start: 20080904, end: 20081027
  9. CORDARONE [Suspect]
     Route: 048
     Dates: start: 20080904, end: 20081008
  10. ASPEGIC 325 [Suspect]
     Route: 048
     Dates: start: 20081008, end: 20081014
  11. NEXIUM [Suspect]
     Route: 048
     Dates: start: 20081008, end: 20081014
  12. AUGMENTIN '125' [Suspect]
     Route: 048
     Dates: start: 20081009, end: 20081012
  13. DIFFU K [Suspect]
     Route: 048
     Dates: start: 20081009, end: 20081027
  14. OFLOXACIN [Suspect]
     Route: 048
     Dates: start: 20081015, end: 20081015
  15. BACTRIM DS [Suspect]
     Route: 048
     Dates: start: 20081019, end: 20081026
  16. DI-ANTALVIC [Suspect]
     Route: 048
     Dates: start: 20081012, end: 20081014
  17. EFFERALGAN [Suspect]
     Route: 048
     Dates: start: 20081009, end: 20081012
  18. CALCIPARINE [Suspect]
     Route: 058
     Dates: start: 20080901, end: 20080910
  19. TAVANIC [Suspect]
     Route: 048
     Dates: start: 20080823, end: 20080828
  20. CARDENSIEL [Concomitant]
  21. TRIATEC [Concomitant]

REACTIONS (3)
  - CELL DEATH [None]
  - CHOLESTASIS [None]
  - JAUNDICE [None]
